FAERS Safety Report 7648990-8 (Version None)
Quarter: 2011Q3

REPORT INFORMATION
  Report Type: 
  Country: None (occurrence: None)
  Receive Date: 20110802
  Receipt Date: 20110725
  Transmission Date: 20111222
  Serious: Yes (Hospitalization)
  Sender: FDA-Public Use
  Company Number: US-BIOGENIDEC-2010BI030292

PATIENT
  Sex: Female
  Weight: 72 kg

DRUGS (6)
  1. AVONEX [Suspect]
     Indication: MULTIPLE SCLEROSIS
     Route: 030
     Dates: start: 20100609
  2. CYMBALTA [Concomitant]
     Indication: DEPRESSION
  3. DIAZEPAM [Concomitant]
     Indication: MUSCLE TWITCHING
  4. SLEEP MEDICATION (NOS) [Concomitant]
     Indication: SLEEP DISORDER
  5. IRON PILL [Concomitant]
     Indication: ANAEMIA
     Route: 048
  6. DETROL [Concomitant]
     Indication: INCONTINENCE
     Dates: start: 20090101, end: 20100801

REACTIONS (18)
  - ANAEMIA [None]
  - DYSSTASIA [None]
  - PNEUMONIA [None]
  - GAIT DISTURBANCE [None]
  - URINARY TRACT INFECTION [None]
  - FOOD POISONING [None]
  - BLOOD GLUCOSE DECREASED [None]
  - URINARY RETENTION [None]
  - SPONDYLOARTHROPATHY [None]
  - INFECTION [None]
  - DIABETES MELLITUS [None]
  - ESCHERICHIA INFECTION [None]
  - CATARACT OPERATION [None]
  - CONFUSIONAL STATE [None]
  - SPINAL FUSION SURGERY [None]
  - MEMORY IMPAIRMENT [None]
  - HAEMOGLOBIN DECREASED [None]
  - FALL [None]
